FAERS Safety Report 7310682-2 (Version None)
Quarter: 2011Q1

REPORT INFORMATION
  Report Type: 
  Country: None (occurrence: None)
  Receive Date: 20110224
  Receipt Date: 20110128
  Transmission Date: 20110831
  Serious: No
  Sender: FDA-Public Use
  Company Number: US-B.I. PHARMACEUTICALS,INC./RIDGEFIELD-2011-BP-02993BP

PATIENT
  Sex: Male

DRUGS (4)
  1. CATAPRES-TTS-1 [Suspect]
  2. WELLBUTRIN SR [Concomitant]
  3. NEURONTIN [Concomitant]
     Dosage: 600 MG
  4. METHADONE HYDROCHLORIDE [Concomitant]

REACTIONS (2)
  - FEELING ABNORMAL [None]
  - LISTLESS [None]
